FAERS Safety Report 6869672-6 (Version None)
Quarter: 2010Q3

REPORT INFORMATION
  Report Type: 
  Country: None (occurrence: None)
  Receive Date: 20100722
  Receipt Date: 20080829
  Transmission Date: 20110219
  Serious: No
  Sender: FDA-Public Use
  Company Number: US-PFIZER INC-2008065720

PATIENT
  Sex: Female
  Weight: 57.272 kg

DRUGS (3)
  1. CHANTIX [Suspect]
     Indication: SMOKING CESSATION THERAPY
     Dates: start: 20080716, end: 20080802
  2. FLONASE [Concomitant]
  3. CLARITIN [Concomitant]

REACTIONS (4)
  - IRRITABILITY [None]
  - NAUSEA [None]
  - SLEEP DISORDER [None]
  - VOMITING [None]
